FAERS Safety Report 7122377-9 (Version None)
Quarter: 2010Q4

REPORT INFORMATION
  Report Type: 
  Country: None (occurrence: None)
  Receive Date: 20101124
  Receipt Date: 20101119
  Transmission Date: 20110411
  Serious: Yes (Hospitalization)
  Sender: FDA-Public Use
  Company Number: US-ALEXION PHARMACEUTICALS INC.-A201001484

PATIENT
  Sex: Male

DRUGS (13)
  1. SOLIRIS [Suspect]
     Indication: PAROXYSMAL NOCTURNAL HAEMOGLOBINURIA
     Dosage: 600 MG, QW
     Route: 042
     Dates: start: 20101104
  2. REVLIMID [Suspect]
     Dosage: 5 MG, QD
     Dates: end: 20101004
  3. NEXIUM [Concomitant]
     Dosage: 40 MG, QD
  4. METOPROLOL TARTRATE [Concomitant]
     Indication: BLOOD PRESSURE
     Dosage: 25
  5. PROSCAR [Concomitant]
     Dosage: 5 MG, QD
  6. SYNTHROID [Concomitant]
     Dosage: 75 MG, QD
  7. FOLIC ACID [Concomitant]
     Dosage: 1 MG, QD
  8. VITAMIN B12                        /00056201/ [Concomitant]
     Dosage: 1000 UG, QD
  9. VITAMINS                           /90003601/ [Concomitant]
     Dosage: UNK
  10. SENNA-S                            /01035001/ [Concomitant]
     Indication: CONSTIPATION
     Dosage: UNK
  11. COUMADIN [Concomitant]
     Dosage: 10 MG, QD
  12. PREDNISONE [Concomitant]
     Dosage: 5 MG, QD
  13. CIPROFLOXACIN [Concomitant]
     Dosage: 250 MG, BID

REACTIONS (5)
  - CELLULITIS [None]
  - DEVICE OCCLUSION [None]
  - EXCORIATION [None]
  - FALL [None]
  - WHITE BLOOD CELL COUNT DECREASED [None]
